FAERS Safety Report 22927151 (Version 2)
Quarter: 2023Q4

REPORT INFORMATION
  Report Type: Spontaneous
  Country: CA (occurrence: CA)
  Receive Date: 20230911
  Receipt Date: 20231017
  Transmission Date: 20240110
  Serious: No
  Sender: FDA-Public Use
  Company Number: CA-TOLMAR, INC.-23CA042680

PATIENT
  Age: 65 Year
  Sex: Male

DRUGS (3)
  1. ELIGARD [Suspect]
     Active Substance: LEUPROLIDE ACETATE
     Indication: Product used for unknown indication
     Dosage: 45 MILLIGRAM, Q 6 MONTH
     Route: 058
     Dates: start: 20230814
  2. ELIGARD [Suspect]
     Active Substance: LEUPROLIDE ACETATE
     Dosage: 45 MILLIGRAM, Q 6 MONTH
     Route: 058
  3. DEVICE [Suspect]
     Active Substance: DEVICE
     Indication: Product used for unknown indication
     Dosage: UNK

REACTIONS (3)
  - Product administration error [Unknown]
  - Syringe issue [Unknown]
  - Device leakage [Unknown]

NARRATIVE: CASE EVENT DATE: 20230814
